FAERS Safety Report 5260849-2 (Version None)
Quarter: 2007Q1

REPORT INFORMATION
  Report Type: 
  Country: None (occurrence: None)
  Receive Date: 20070309
  Receipt Date: 20070302
  Transmission Date: 20070707
  Serious: Yes (Other)
  Sender: FDA-Public Use
  Company Number: DE-JNJFOC-20061205888

PATIENT
  Sex: Male
  Weight: 57 kg

DRUGS (2)
  1. TOPAMAX [Suspect]
     Indication: EPILEPSY
     Route: 048
  2. LUMINAL [Concomitant]
     Indication: EPILEPSY
     Route: 048

REACTIONS (1)
  - HYPERTHYROIDISM [None]
